FAERS Safety Report 7753029-X (Version None)
Quarter: 2011Q3

REPORT INFORMATION
  Report Type: 
  Country: None (occurrence: None)
  Receive Date: 20110915
  Receipt Date: 20110908
  Transmission Date: 20111222
  Serious: Yes (Other)
  Sender: FDA-Public Use
  Company Number: BR-PFIZER INC-2011196467

PATIENT
  Sex: Male

DRUGS (2)
  1. VIAGRA [Suspect]
     Indication: ERECTILE DYSFUNCTION
     Dosage: 50 MG, 1X/DAY
     Route: 048
     Dates: start: 20110906, end: 20110906
  2. VIAGRA [Suspect]
     Indication: SEMEN VOLUME INCREASED
     Dosage: UNK
     Route: 048

REACTIONS (3)
  - PENILE SWELLING [None]
  - PENIS DISORDER [None]
  - PENILE PAIN [None]
